FAERS Safety Report 5429720-7 (Version None)
Quarter: 2007Q3

REPORT INFORMATION
  Report Type: 
  Country: None (occurrence: None)
  Receive Date: 20070731
  Receipt Date: 20070413
  Transmission Date: 20080115
  Serious: No
  Sender: FDA-Public Use
  Company Number: US200704003304

PATIENT
  Age: 41 Year
  Sex: Female
  Weight: 137.4 kg

DRUGS (5)
  1. BYETTA [Suspect]
     Indication: TYPE 2 DIABETES MELLITUS
     Dosage: 5 UG, 2/D, SUBCUTANEOUS; 10 UG, 2/D, SUBCUTANEOUS
     Route: 058
     Dates: start: 20070316, end: 20070330
  2. BYETTA [Suspect]
     Indication: TYPE 2 DIABETES MELLITUS
     Dosage: 5 UG, 2/D, SUBCUTANEOUS; 10 UG, 2/D, SUBCUTANEOUS
     Route: 058
     Dates: start: 20070331
  3. METFORMIN HCL [Concomitant]
  4. AVANDIA [Concomitant]
  5. LANTUS [Concomitant]

REACTIONS (3)
  - ANOREXIA [None]
  - DRUG INEFFECTIVE [None]
  - WEIGHT DECREASED [None]
